FAERS Safety Report 25619124 (Version 1)
Quarter: 2025Q3

REPORT INFORMATION
  Report Type: Spontaneous
  Country: CA (occurrence: CA)
  Receive Date: 20250729
  Receipt Date: 20250729
  Transmission Date: 20251021
  Serious: Yes (Other)
  Sender: ALEXION PHARMACEUTICALS
  Company Number: None

PATIENT
  Sex: Female
  Weight: 58 kg

DRUGS (20)
  1. ULTOMIRIS [Suspect]
     Active Substance: RAVULIZUMAB-CWVZ
     Indication: Atypical haemolytic uraemic syndrome
  2. ULTOMIRIS [Suspect]
     Active Substance: RAVULIZUMAB-CWVZ
     Dosage: 3300 MILLIGRAM, Q8W
  3. ULTOMIRIS [Suspect]
     Active Substance: RAVULIZUMAB-CWVZ
     Route: 065
  4. ULTOMIRIS [Suspect]
     Active Substance: RAVULIZUMAB-CWVZ
     Route: 065
  5. AMLODIPINE BESYLATE [Concomitant]
     Active Substance: AMLODIPINE BESYLATE
     Route: 065
  6. AMOXICILLIN TRIHYDRATE [Concomitant]
     Active Substance: AMOXICILLIN
     Dosage: 500 MILLIGRAM, BID, 2 EVERY 1 DAYS
     Route: 065
  7. ATIVAN [Concomitant]
     Active Substance: LORAZEPAM
     Route: 065
  8. FLUCONAZOLE [Concomitant]
     Active Substance: FLUCONAZOLE
     Dosage: 400 MILLIGRAM, BID, 2 EVERY 1 DAYS
     Route: 065
  9. HYDROCORTISONE ACETATE [Concomitant]
     Active Substance: HYDROCORTISONE ACETATE
     Dosage: 15 MILLIGRAM, QD, 1 EVERY 1 DAYS
     Route: 065
  10. MAGNESIUM [Concomitant]
     Active Substance: MAGNESIUM
     Route: 065
  11. METOCLOPRAMIDE [Concomitant]
     Active Substance: METOCLOPRAMIDE
     Dosage: 10 MILLIGRAM, TID, 3 EVERY 1 DAYS
     Route: 065
  12. PANTOPRAZOLE SODIUM [Concomitant]
     Active Substance: PANTOPRAZOLE SODIUM
     Route: 065
  13. PENTAMIDINE [Concomitant]
     Active Substance: PENTAMIDINE
     Route: 065
  14. PREVYMIS [Concomitant]
     Active Substance: LETERMOVIR
     Route: 065
  15. TACROLIMUS [Concomitant]
     Active Substance: TACROLIMUS
     Route: 065
  16. URSODIOL [Concomitant]
     Active Substance: URSODIOL
     Dosage: 375 MILLIGRAM, BID, 2 EVERY 1 DAYS
     Route: 065
  17. VALACYCLOVIR HYDROCHLORIDE [Concomitant]
     Active Substance: VALACYCLOVIR HYDROCHLORIDE
     Dosage: 500 MILLIGRAM, BID, 2 EVERY 1 DAYS
     Route: 065
  18. VENTOLIN [Concomitant]
     Active Substance: ALBUTEROL SULFATE
     Route: 065
  19. VITAMIN D [Concomitant]
     Active Substance: VITAMIN D NOS
     Route: 065
  20. ZOPICLONE [Concomitant]
     Active Substance: ZOPICLONE
     Route: 065

REACTIONS (27)
  - Acute kidney injury [Recovering/Resolving]
  - Albumin globulin ratio increased [Recovering/Resolving]
  - Basophil count increased [Recovering/Resolving]
  - Blood creatinine increased [Recovering/Resolving]
  - Blood immunoglobulin M decreased [Recovering/Resolving]
  - Blood lactate dehydrogenase increased [Recovering/Resolving]
  - Blood magnesium decreased [Recovering/Resolving]
  - Blood phosphorus increased [Recovering/Resolving]
  - Blood uric acid increased [Recovering/Resolving]
  - Deafness unilateral [Recovering/Resolving]
  - Eating disorder [Recovering/Resolving]
  - Eosinophil count increased [Recovering/Resolving]
  - Food allergy [Recovering/Resolving]
  - Gastrooesophageal reflux disease [Recovering/Resolving]
  - Glomerular filtration rate decreased [Recovering/Resolving]
  - Haematocrit decreased [Recovering/Resolving]
  - Haemoglobin decreased [Recovering/Resolving]
  - Lymphocyte count increased [Recovering/Resolving]
  - Mean cell haemoglobin increased [Recovering/Resolving]
  - Melanocytic naevus [Recovering/Resolving]
  - Monocytosis [Recovering/Resolving]
  - Neutrophil count decreased [Recovering/Resolving]
  - Platelet count decreased [Recovering/Resolving]
  - Prothrombin time shortened [Recovering/Resolving]
  - Red blood cell count decreased [Recovering/Resolving]
  - White blood cell count increased [Recovering/Resolving]
  - Red cell distribution width increased [Recovering/Resolving]
